FAERS Safety Report 14700660 (Version 2)
Quarter: 2018Q2

REPORT INFORMATION
  Report Type: Spontaneous
  Country: DE (occurrence: DE)
  Receive Date: 20180330
  Receipt Date: 20180418
  Transmission Date: 20180711
  Serious: Yes (Other)
  Sender: FDA-Public Use
  Company Number: DE-PFIZER INC-2018129400

PATIENT
  Age: 18 Year
  Sex: Female

DRUGS (4)
  1. RANIBETA [Suspect]
     Active Substance: RANITIDINE HYDROCHLORIDE
     Dosage: UNK
     Route: 048
     Dates: start: 20180217, end: 20180217
  2. AMBROXOL [Suspect]
     Active Substance: AMBROXOL
     Dosage: UNK
     Route: 048
     Dates: start: 20180217, end: 20180217
  3. IBUPROFEN. [Suspect]
     Active Substance: IBUPROFEN
     Dosage: UNK
     Route: 048
     Dates: start: 20180217, end: 20180217
  4. CIPROFLOXACIN. [Suspect]
     Active Substance: CIPROFLOXACIN
     Dosage: UNK
     Route: 048
     Dates: start: 20180217, end: 20180217

REACTIONS (2)
  - Vomiting [Unknown]
  - Blood creatine phosphokinase increased [Unknown]
